FAERS Safety Report 5030144-5 (Version None)
Quarter: 2006Q2

REPORT INFORMATION
  Report Type: 
  Country: None (occurrence: None)
  Receive Date: 20060614
  Receipt Date: 20060602
  Transmission Date: 20061013
  Serious: Yes (Hospitalization, Other)
  Sender: FDA-Public Use
  Company Number: 2006072485

PATIENT
  Age: 60 Year
  Sex: Female
  Weight: 71.6683 kg

DRUGS (1)
  1. BEXTRA [Suspect]
     Indication: ARTHRALGIA
     Dosage: 1 IN 1 D
     Dates: start: 20020901

REACTIONS (4)
  - ARTERIAL OCCLUSIVE DISEASE [None]
  - HEART INJURY [None]
  - STENT PLACEMENT [None]
  - VASCULAR BYPASS GRAFT [None]
